FAERS Safety Report 8493508-3 (Version None)
Quarter: 2012Q2

REPORT INFORMATION
  Report Type: 
  Country: None (occurrence: None)
  Receive Date: 20120627
  Receipt Date: 20120619
  Transmission Date: 20120825
  Serious: Yes (Hospitalization)
  Sender: FDA-Public Use
  Company Number: WAES 1201USA03079

PATIENT
  Age: 40 Year
  Sex: Female

DRUGS (4)
  1. DECADRON [Suspect]
     Dosage: PO
     Route: 048
  2. INJ ONCOVEX GM-CSF (CANCER GM-CSF TRANSGENE RE [Suspect]
     Indication: GLIOBLASTOMA
     Dosage: 75 MICROGM DOSE # 6 ; 75 MICROGM DOSE # 10
     Dates: start: 20110816
  3. INJ ONCOVEX GM-CSF (CANCER GM-CSF TRANSGENE RE [Suspect]
     Indication: GLIOBLASTOMA
     Dosage: 75 MICROGM DOSE # 6 ; 75 MICROGM DOSE # 10
     Dates: start: 20111206
  4. TEMOZOLOMIDE [Concomitant]

REACTIONS (3)
  - ORAL CANDIDIASIS [None]
  - VIRAL UPPER RESPIRATORY TRACT INFECTION [None]
  - PRESYNCOPE [None]
